FAERS Safety Report 12370010 (Version 1)
Quarter: 2016Q2

REPORT INFORMATION
  Report Type: Spontaneous
  Country: None (occurrence: None)
  Receive Date: 20160512
  Receipt Date: 20160512
  Transmission Date: 20160815
  Serious: Yes (Life-Threatening, Hospitalization)
  Sender: FDA-Public Use
  Company Number: US-ALSI-201600121

PATIENT
  Age: 22 Year
  Sex: Male

DRUGS (1)
  1. NITROUS OXIDE. [Suspect]
     Active Substance: NITROUS OXIDE
     Indication: DRUG ABUSE
     Route: 055

REACTIONS (6)
  - Refusal of treatment by patient [None]
  - Asphyxia [None]
  - Drug abuse [None]
  - Memory impairment [None]
  - Coma [None]
  - Cerebral ischaemia [None]
